FAERS Safety Report 7150774-4 (Version None)
Quarter: 2010Q4

REPORT INFORMATION
  Report Type: 
  Country: None (occurrence: None)
  Receive Date: 20101210
  Receipt Date: 20101130
  Transmission Date: 20110411
  Serious: Yes (Death, Life-Threatening, Other)
  Sender: FDA-Public Use
  Company Number: JP-ROCHE-721175

PATIENT
  Age: 58 Year
  Sex: Male
  Weight: 50 kg

DRUGS (7)
  1. AVASTIN [Suspect]
     Indication: LUNG ADENOCARCINOMA
     Route: 041
     Dates: start: 20100714, end: 20100804
  2. ALIMTA [Concomitant]
     Dosage: DOSAGE IS UNCERTAIN
     Route: 041
     Dates: start: 20100714, end: 20100804
  3. PLATOSIN [Concomitant]
     Dosage: DOSAGE IS UNCERTAIN.
     Route: 041
     Dates: start: 20100714, end: 20100804
  4. CARBOPLATIN [Concomitant]
     Route: 041
  5. CELCOX [Concomitant]
     Dosage: CELECOX
     Dates: start: 20100630, end: 20100807
  6. REBAMIPIDE [Concomitant]
     Dates: start: 20100630, end: 20100807
  7. OMEPRAL [Concomitant]
     Dates: start: 20100630, end: 20100807

REACTIONS (6)
  - DEVICE RELATED INFECTION [None]
  - DISSEMINATED INTRAVASCULAR COAGULATION [None]
  - MULTI-ORGAN FAILURE [None]
  - PERITONITIS [None]
  - SEPSIS [None]
  - SMALL INTESTINAL PERFORATION [None]
